FAERS Safety Report 25710682 (Version 1)
Quarter: 2025Q3

REPORT INFORMATION
  Report Type: Spontaneous
  Country: US (occurrence: US)
  Receive Date: 20250821
  Receipt Date: 20250821
  Transmission Date: 20251020
  Serious: No
  Sender: BAYER HEALTHCARE PHARMACEUTICALS INC.
  Company Number: US-BAYER-2025A111035

PATIENT
  Sex: Female

DRUGS (1)
  1. MIRENA [Suspect]
     Active Substance: LEVONORGESTREL
     Indication: Endometrial neoplasm
     Dosage: 20?G/DAY
     Route: 015
     Dates: start: 20250820

REACTIONS (2)
  - Product use in unapproved indication [None]
  - Device defective [None]

NARRATIVE: CASE EVENT DATE: 20250820
